FAERS Safety Report 6636860-3 (Version None)
Quarter: 2010Q1

REPORT INFORMATION
  Report Type: 
  Country: None (occurrence: None)
  Receive Date: 20100316
  Receipt Date: 20100310
  Transmission Date: 20100710
  Serious: Yes (Hospitalization, Other)
  Sender: FDA-Public Use
  Company Number: CH-WYE-G05721110

PATIENT
  Age: 41 Year
  Sex: Female

DRUGS (2)
  1. EFFEXOR [Suspect]
     Indication: DEPRESSION
     Dosage: SINCE LONG TIME, 300 MG DAILY
  2. LAMICTAL CD [Suspect]
     Indication: DEPRESSION
     Dates: start: 20090101, end: 20090101

REACTIONS (2)
  - DRUG EXPOSURE DURING PREGNANCY [None]
  - PRE-ECLAMPSIA [None]
